FAERS Safety Report 25346292 (Version 3)
Quarter: 2025Q3

REPORT INFORMATION
  Report Type: Spontaneous
  Country: EU (occurrence: EU)
  Receive Date: 20250522
  Receipt Date: 20250902
  Transmission Date: 20251020
  Serious: Yes (Hospitalization)
  Sender: AIRGAS
  Company Number: EU-ALSI-2025000118

PATIENT
  Age: 31 Year
  Sex: Male

DRUGS (1)
  1. NITROUS OXIDE [Suspect]
     Active Substance: NITROUS OXIDE
     Indication: Substance abuse
     Dates: start: 20240820

REACTIONS (3)
  - Gait disturbance [Recovering/Resolving]
  - Subacute combined cord degeneration [Recovering/Resolving]
  - Sensorimotor disorder [Recovering/Resolving]
